FAERS Safety Report 8559898-8 (Version None)
Quarter: 2012Q3

REPORT INFORMATION
  Report Type: 
  Country: None (occurrence: None)
  Receive Date: 20120802
  Receipt Date: 20120727
  Transmission Date: 20120928
  Serious: Yes (Hospitalization)
  Sender: FDA-Public Use
  Company Number: US-INCYTE CORPORATION-2012IN001393

PATIENT
  Sex: Female

DRUGS (3)
  1. PREDNISONE [Concomitant]
     Indication: HERPES ZOSTER
  2. ANALGESICS [Concomitant]
  3. JAKAFI [Suspect]
     Indication: MYELOFIBROSIS
     Dosage: 10 MG, BID
     Route: 048
     Dates: end: 20120716

REACTIONS (3)
  - HERPES ZOSTER OPHTHALMIC [None]
  - HERPES PHARYNGITIS [None]
  - HERPES ZOSTER OTICUS [None]
